FAERS Safety Report 6387123-5 (Version None)
Quarter: 2009Q4

REPORT INFORMATION
  Report Type: 
  Country: None (occurrence: None)
  Receive Date: 20091002
  Receipt Date: 20090929
  Transmission Date: 20100525
  Serious: Yes (Death, Hospitalization)
  Sender: FDA-Public Use
  Company Number: BE-BAYER-200090545GDS

PATIENT
  Age: 43 Year
  Sex: Female
  Weight: 65 kg

DRUGS (7)
  1. CIPROXINE [Suspect]
     Indication: CYSTITIS
     Dosage: UNIT DOSE: 250 MG
     Route: 048
     Dates: start: 20000531, end: 20000603
  2. TRANXENE [Concomitant]
     Indication: PSYCHOTIC DISORDER
     Dosage: TOTAL DAILY DOSE: 15 MG
     Route: 048
  3. ZYRTEC [Concomitant]
     Indication: HYPERSENSITIVITY
     Route: 048
  4. PROTHIPENDYL [Concomitant]
     Indication: DRUG USE FOR UNKNOWN INDICATION
  5. RISPERDAL [Concomitant]
     Indication: PSYCHOTIC DISORDER
     Route: 048
  6. OULTAXON [Concomitant]
     Indication: PSYCHOTIC DISORDER
     Dosage: TOTAL DAILY DOSE: 75 MG
  7. DITROPAN [Concomitant]
     Indication: DYSURIA

REACTIONS (4)
  - HAEMOLYTIC ANAEMIA [None]
  - SUBARACHNOID HAEMORRHAGE [None]
  - THROMBOCYTOPENIA [None]
  - THROMBOTIC THROMBOCYTOPENIC PURPURA [None]
